FAERS Safety Report 15007247 (Version 1)
Quarter: 2018Q2

REPORT INFORMATION
  Report Type: Report from Study
  Country: US (occurrence: US)
  Receive Date: 20180613
  Receipt Date: 20180613
  Transmission Date: 20180711
  Serious: Yes (Hospitalization, Other)
  Sender: FDA-Public Use
  Company Number: US-GILEAD-2018-0343828

PATIENT
  Age: 53 Year
  Sex: Female

DRUGS (16)
  1. LEVETIRACETAM. [Concomitant]
     Active Substance: LEVETIRACETAM
  2. AMBRISENTAN [Suspect]
     Active Substance: AMBRISENTAN
     Indication: PULMONARY HYPERTENSION
     Dosage: 5 MG, QD
     Route: 065
     Dates: start: 20171218
  3. ALEVE [Concomitant]
     Active Substance: NAPROXEN SODIUM
  4. ASPIR 81 [Concomitant]
  5. ATORVASTATIN [Concomitant]
     Active Substance: ATORVASTATIN
  6. BREO ELLIPTA [Concomitant]
     Active Substance: FLUTICASONE FUROATE\VILANTEROL TRIFENATATE
  7. CARVEDILOL. [Concomitant]
     Active Substance: CARVEDILOL
  8. FUROSEMIDE. [Concomitant]
     Active Substance: FUROSEMIDE
  9. TOUJEO [Concomitant]
     Active Substance: INSULIN GLARGINE
  10. INCRUSE ELLIPTA [Concomitant]
     Active Substance: UMECLIDINIUM BROMIDE
  11. LEVOTHYROXINE. [Concomitant]
     Active Substance: LEVOTHYROXINE
  12. LISINOPRIL. [Concomitant]
     Active Substance: LISINOPRIL
  13. RANITIDINE. [Concomitant]
     Active Substance: RANITIDINE
  14. TACROLIMUS. [Concomitant]
     Active Substance: TACROLIMUS
  15. APIDRA [Concomitant]
     Active Substance: INSULIN GLULISINE
  16. MYCOPHENOLATE [Concomitant]
     Active Substance: MYCOPHENOLIC ACID

REACTIONS (2)
  - Transient ischaemic attack [Unknown]
  - Scar [Unknown]
